FAERS Safety Report 22525908 (Version 1)
Quarter: 2023Q2

REPORT INFORMATION
  Report Type: Spontaneous
  Country: US (occurrence: US)
  Receive Date: 20230606
  Receipt Date: 20230606
  Transmission Date: 20230721
  Serious: No
  Sender: FDA-Public Use
  Company Number: US-PFIZER INC-202300209361

PATIENT

DRUGS (1)
  1. PRAZOSIN HYDROCHLORIDE [Suspect]
     Active Substance: PRAZOSIN HYDROCHLORIDE
     Dosage: UNK

REACTIONS (5)
  - Nasal pruritus [Unknown]
  - Nasal congestion [Unknown]
  - Urticaria [Unknown]
  - Dysstasia [Unknown]
  - Heart rate increased [Unknown]
